FAERS Safety Report 6133087-9 (Version None)
Quarter: 2009Q1

REPORT INFORMATION
  Report Type: 
  Country: None (occurrence: None)
  Receive Date: 20090326
  Receipt Date: 20090317
  Transmission Date: 20090719
  Serious: Yes (Death, Life-Threatening, Hospitalization)
  Sender: FDA-Public Use
  Company Number: JP-AMGEN-US322467

PATIENT
  Sex: Male
  Weight: 63 kg

DRUGS (8)
  1. ENBREL [Suspect]
     Indication: RHEUMATOID ARTHRITIS
     Dosage: LYOPHILIZED; 25 MG ONCE WEEKLY
     Route: 058
     Dates: start: 20060510
  2. RANITIDINE HYDROCHLORIDE [Concomitant]
     Indication: PROPHYLAXIS
     Route: 048
  3. PREDNISOLONE [Concomitant]
     Indication: INFLAMMATION
     Route: 048
  4. ISOSORBIDE DINITRATE [Concomitant]
     Indication: ANGINA PECTORIS
     Route: 065
  5. MAG-LAX [Concomitant]
     Indication: CONSTIPATION
     Route: 048
  6. TRIAZOLAM [Concomitant]
     Indication: INSOMNIA
     Route: 048
  7. BLOPRESS [Concomitant]
     Indication: HYPERTENSION
     Route: 048
  8. ACETYLSALICYLIC ACID [Concomitant]
     Indication: ANGINA PECTORIS
     Route: 048

REACTIONS (6)
  - BILE DUCT CANCER [None]
  - CARDIAC ARREST [None]
  - CHOLANGITIS [None]
  - CONDITION AGGRAVATED [None]
  - NASOPHARYNGITIS [None]
  - RHEUMATOID ARTHRITIS [None]
